FAERS Safety Report 10023600 (Version 2)
Quarter: 2022Q1

REPORT INFORMATION
  Report Type: Spontaneous
  Country: GB (occurrence: GB)
  Receive Date: 20140320
  Receipt Date: 20220324
  Transmission Date: 20220423
  Serious: Yes (Life-Threatening, Hospitalization, Other)
  Sender: FDA-Public Use
  Company Number: GB-PERRIGO-14GB002711

PATIENT
  Age: 20 Year
  Sex: Female
  Weight: 54 kg

DRUGS (1)
  1. ACETAMINOPHEN [Suspect]
     Active Substance: ACETAMINOPHEN
     Indication: Product used for unknown indication
     Dosage: 16-62 GRAMS, QD
     Route: 048

REACTIONS (11)
  - Overdose [Recovered/Resolved]
  - Acute hepatic failure [Recovered/Resolved]
  - Hepatic vein thrombosis [Recovered/Resolved]
  - Pulmonary embolism [Recovered/Resolved]
  - Pleural effusion [Recovered/Resolved]
  - Sinus disorder [Recovered/Resolved]
  - Pulmonary sepsis [Recovered/Resolved]
  - Renal failure [Recovered/Resolved]
  - Transplant dysfunction [Recovered/Resolved]
  - Venoocclusive liver disease [Recovered/Resolved]
  - Impaired healing [Recovered/Resolved]
